FAERS Safety Report 7005244-0 (Version None)
Quarter: 2010Q3

REPORT INFORMATION
  Report Type: 
  Country: None (occurrence: None)
  Receive Date: 20100917
  Receipt Date: 20100831
  Transmission Date: 20110219
  Serious: Yes (Hospitalization)
  Sender: FDA-Public Use
  Company Number: 2010EU004295

PATIENT
  Age: 50 Year
  Sex: Female

DRUGS (8)
  1. PROGRAF [Suspect]
     Indication: RENAL TRANSPLANT
     Dosage: 4.5 MG, UID/QD, ORAL
     Route: 048
     Dates: start: 20091015, end: 20100719
  2. CELLCEPT [Concomitant]
  3. HYDROCORTISONE [Concomitant]
  4. ZYLORIC (ALLOPURINOL SODIUM) [Concomitant]
  5. SECTRAL [Concomitant]
  6. INEXIUM (ESOMEPRAZOLE SODIUM) [Concomitant]
  7. ATORVASTATIN CALCIUM [Concomitant]
  8. LYRICA [Concomitant]

REACTIONS (5)
  - DRUG EFFECT DECREASED [None]
  - MACULAR OEDEMA [None]
  - PAPILLOEDEMA [None]
  - SCOTOMA [None]
  - TOXIC OPTIC NEUROPATHY [None]
